FAERS Safety Report 6788156-7 (Version None)
Quarter: 2010Q2

REPORT INFORMATION
  Report Type: 
  Country: None (occurrence: None)
  Receive Date: 20100623
  Receipt Date: 20080114
  Transmission Date: 20101027
  Serious: No
  Sender: FDA-Public Use
  Company Number: US-PFIZER INC-2008004427

PATIENT
  Sex: Male

DRUGS (5)
  1. SUTENT [Suspect]
     Indication: RENAL CANCER
     Dates: start: 20080108
  2. LOPRESSOR [Concomitant]
     Indication: HYPERTENSION
  3. TAMSULOSIN HYDROCHLORIDE [Concomitant]
  4. AVODART [Concomitant]
  5. VITAMINS [Concomitant]

REACTIONS (3)
  - AGEUSIA [None]
  - ANAEMIA [None]
  - NAUSEA [None]
